FAERS Safety Report 22656079 (Version 1)
Quarter: 2023Q2

REPORT INFORMATION
  Report Type: Spontaneous
  Country: US (occurrence: US)
  Receive Date: 20230629
  Receipt Date: 20230629
  Transmission Date: 20230722
  Serious: Yes (Other)
  Sender: FDA-Public Use
  Company Number: US-FreseniusKabi-FK202309634

PATIENT
  Age: 48 Year
  Sex: Male

DRUGS (4)
  1. FAT EMULSION NOS [Suspect]
     Active Substance: EGG PHOSPHOLIPIDS\SAFFLOWER OIL\SOYBEAN OIL
     Indication: Toxicity to various agents
     Dosage: 20 PERCENT?1.5 ML/KG
     Route: 040
  2. FAT EMULSION NOS [Suspect]
     Active Substance: EGG PHOSPHOLIPIDS\SAFFLOWER OIL\SOYBEAN OIL
     Dosage: 20 PERCENT
     Route: 042
  3. SODIUM BICARBONATE [Concomitant]
     Active Substance: SODIUM BICARBONATE
     Indication: Toxicity to various agents
     Dosage: 200 MEQ
     Route: 042
  4. DEXTROSE [Concomitant]
     Active Substance: DEXTROSE\DEXTROSE MONOHYDRATE
     Indication: Toxicity to various agents
     Dosage: DEXTROSE 5 PERCENT INFUSION 1250 ML (EQUIVALENT TO?0.16 MEQ/ML)

REACTIONS (1)
  - Hypertriglyceridaemia [Recovered/Resolved]
